FAERS Safety Report 10585013 (Version 1)
Quarter: 2014Q4

REPORT INFORMATION
  Report Type: Spontaneous
  Country: GB (occurrence: GB)
  Receive Date: 20141114
  Receipt Date: 20141114
  Transmission Date: 20150529
  Serious: Yes (Other)
  Sender: FDA-Public Use
  Company Number: GB-TEVA-521772ISR

PATIENT
  Age: 70 Year
  Sex: Female
  Weight: 63 kg

DRUGS (1)
  1. CARBAMAZEPINE. [Suspect]
     Active Substance: CARBAMAZEPINE
     Route: 048

REACTIONS (5)
  - Liver function test abnormal [Unknown]
  - Toxicity to various agents [Recovering/Resolving]
  - Tachycardia [Unknown]
  - Confusional state [Unknown]
  - Pyrexia [Unknown]

NARRATIVE: CASE EVENT DATE: 20141029
